FAERS Safety Report 10853694 (Version 1)
Quarter: 2015Q1

REPORT INFORMATION
  Report Type: Spontaneous
  Country: US (occurrence: None)
  Receive Date: 20150218
  Receipt Date: 20150218
  Transmission Date: 20150721
  Serious: Yes (Hospitalization)
  Sender: FDA-Public Use
  Company Number: None

PATIENT
  Age: 67 Year
  Sex: Male
  Weight: 93.2 kg

DRUGS (1)
  1. LISINOPRIL. [Suspect]
     Active Substance: LISINOPRIL
     Dosage: 10 MG, EVERY DAY, PO?
     Route: 048
     Dates: start: 20141030, end: 20141102

REACTIONS (3)
  - Face oedema [None]
  - Tongue oedema [None]
  - Angioedema [None]

NARRATIVE: CASE EVENT DATE: 20141102
